FAERS Safety Report 8236633-4 (Version None)
Quarter: 2012Q1

REPORT INFORMATION
  Report Type: 
  Country: None (occurrence: None)
  Receive Date: 20120326
  Receipt Date: 20120326
  Transmission Date: 20120608
  Serious: No
  Sender: FDA-Public Use
  Company Number: None

PATIENT
  Age: 55 Year
  Sex: Female
  Weight: 104.3273 kg

DRUGS (1)
  1. ZOCOR [Suspect]
     Indication: BLOOD CHOLESTEROL INCREASED
     Dosage: 20 MG ONE AT BEDTIME

REACTIONS (7)
  - INSOMNIA [None]
  - ABDOMINAL PAIN UPPER [None]
  - PAIN [None]
  - CHROMATURIA [None]
  - CONTUSION [None]
  - HEART RATE INCREASED [None]
  - CHILLS [None]
